FAERS Safety Report 6804915-6 (Version None)
Quarter: 2010Q2

REPORT INFORMATION
  Report Type: 
  Country: None (occurrence: None)
  Receive Date: 20100628
  Receipt Date: 20100628
  Transmission Date: 20101027
  Serious: Yes (Other)
  Sender: FDA-Public Use
  Company Number: None

PATIENT
  Age: 58 Year
  Sex: Female
  Weight: 64.8644 kg

DRUGS (1)
  1. AMLODIPINE [Suspect]
     Indication: HYPERTENSION
     Dosage: 5 MG 1/D PO
     Route: 048
     Dates: start: 20080522

REACTIONS (3)
  - DYSPNOEA [None]
  - PALPITATIONS [None]
  - PRODUCT SUBSTITUTION ISSUE [None]
